FAERS Safety Report 4832298-X (Version None)
Quarter: 2005Q4

REPORT INFORMATION
  Report Type: 
  Country: None (occurrence: None)
  Receive Date: 20051116
  Receipt Date: 20051116
  Transmission Date: 20060501
  Serious: Yes (Other)
  Sender: FDA-Public Use
  Company Number: None

PATIENT
  Age: 22 Year
  Sex: Female

DRUGS (2)
  1. LAMICTAL [Suspect]
     Indication: BIPOLAR DISORDER
     Dosage: 25 MG QHS PO
     Route: 048
     Dates: start: 20051025, end: 20051027
  2. LAMICTAL [Suspect]
     Indication: MOOD SWINGS
     Dosage: 25 MG QHS PO
     Route: 048
     Dates: start: 20051025, end: 20051027

REACTIONS (3)
  - PRURITUS [None]
  - RASH [None]
  - URTICARIA [None]
